FAERS Safety Report 6843538-X (Version None)
Quarter: 2010Q3

REPORT INFORMATION
  Report Type: 
  Country: None (occurrence: None)
  Receive Date: 20100715
  Receipt Date: 20100713
  Transmission Date: 20110219
  Serious: Yes (Hospitalization, Other)
  Sender: FDA-Public Use
  Company Number: IT-ROXANE LABORATORIES, INC.-2010-RO-00834RO

PATIENT
  Age: 44 Year
  Sex: Female

DRUGS (2)
  1. AZATHIOPRINE [Suspect]
     Indication: CROHN'S DISEASE
     Dates: start: 20050101
  2. METHOTREXATE [Suspect]
     Indication: CROHN'S DISEASE
     Route: 048

REACTIONS (2)
  - PANCREATITIS ACUTE [None]
  - PNEUMONITIS [None]
